FAERS Safety Report 9175472 (Version 1)
Quarter: 2013Q1

REPORT INFORMATION
  Report Type: Spontaneous
  Country: US (occurrence: US)
  Receive Date: 20130320
  Receipt Date: 20130320
  Transmission Date: 20140127
  Serious: No
  Sender: FDA-Public Use
  Company Number: US-ASTRAZENECA-2013SE13861

PATIENT
  Sex: Male

DRUGS (3)
  1. BRILINTA [Suspect]
     Indication: ACUTE MYOCARDIAL INFARCTION
     Dosage: LOADING DOSE
     Route: 048
     Dates: start: 20130208, end: 20130208
  2. HEPARIN [Suspect]
     Route: 065
     Dates: start: 20130208, end: 20130215
  3. INTEGRILIN [Suspect]
     Route: 065
     Dates: start: 20130208, end: 20130212

REACTIONS (1)
  - Platelet function test abnormal [Not Recovered/Not Resolved]
